FAERS Safety Report 4704338-X (Version None)
Quarter: 2005Q2

REPORT INFORMATION
  Report Type: 
  Country: None (occurrence: None)
  Receive Date: 20050628
  Receipt Date: 20050627
  Transmission Date: 20051028
  Serious: Yes (Hospitalization)
  Sender: FDA-Public Use
  Company Number: A001-233-824

PATIENT
  Age: 61 Year
  Sex: Female
  Weight: 63.8 kg

DRUGS (5)
  1. DONEPEZIL HCL [Suspect]
     Dosage: DOUBLEBLIND, 1 IN 1 D ORAL
     Route: 048
     Dates: start: 20050524, end: 20050620
  2. ACETYLSALICYLIC ACID SRT [Concomitant]
  3. ESTRADIOL /PROGESTERONE (ESTRADIOL) [Concomitant]
  4. CALCIUM CARBONATE (CALCIUM CARBONATE) [Concomitant]
  5. MUTLIVITAMINS [Concomitant]

REACTIONS (7)
  - APNOEA [None]
  - BRAIN SCAN ABNORMAL [None]
  - COMA [None]
  - DISORIENTATION [None]
  - EPILEPSY [None]
  - HEART RATE INCREASED [None]
  - HYPERKINESIA [None]
